FAERS Safety Report 24299932 (Version 1)
Quarter: 2024Q3

REPORT INFORMATION
  Report Type: Spontaneous
  Country: CA (occurrence: CA)
  Receive Date: 20240909
  Receipt Date: 20240909
  Transmission Date: 20241017
  Serious: Yes (Other)
  Sender: PFIZER
  Company Number: CA-PFIZER INC-202400250892

PATIENT
  Age: 53 Year
  Sex: Male

DRUGS (12)
  1. HYDROMORPHONE HYDROCHLORIDE [Suspect]
     Active Substance: HYDROMORPHONE HYDROCHLORIDE
  2. LORAZEPAM [Suspect]
     Active Substance: LORAZEPAM
     Route: 065
  3. TRANEXAMIC ACID [Suspect]
     Active Substance: TRANEXAMIC ACID
  4. VORICONAZOLE [Suspect]
     Active Substance: VORICONAZOLE
  5. AMOXICILLIN\CLAVULANATE POTASSIUM [Suspect]
     Active Substance: AMOXICILLIN\CLAVULANATE POTASSIUM
  6. ASPARTAME\CHOLESTYRAMINE [Suspect]
     Active Substance: ASPARTAME\CHOLESTYRAMINE
  7. CIPROFLOXACIN HYDROCHLORIDE\DEXAMETHASONE [Suspect]
     Active Substance: CIPROFLOXACIN HYDROCHLORIDE\DEXAMETHASONE
  8. CYANOCOBALAMIN [Suspect]
     Active Substance: CYANOCOBALAMIN
  9. LEVOTHYROXINE SODIUM [Suspect]
     Active Substance: LEVOTHYROXINE SODIUM
     Route: 065
  10. ONDANSETRON [Suspect]
     Active Substance: ONDANSETRON
  11. SULFAMETHOXAZOLE\TRIMETHOPRIM [Suspect]
     Active Substance: SULFAMETHOXAZOLE\TRIMETHOPRIM
     Route: 065
  12. VALACYCLOVIR [Suspect]
     Active Substance: VALACYCLOVIR HYDROCHLORIDE

REACTIONS (1)
  - Febrile neutropenia [Unknown]
